FAERS Safety Report 4624727-1 (Version None)
Quarter: 2005Q1

REPORT INFORMATION
  Report Type: 
  Country: None (occurrence: None)
  Receive Date: 20050107
  Receipt Date: 20041004
  Transmission Date: 20050727
  Serious: No
  Sender: FDA-Public Use
  Company Number: 233031K04USA

PATIENT
  Age: 24 Year
  Sex: Female

DRUGS (3)
  1. REBIF [Suspect]
     Indication: MULTIPLE SCLEROSIS
     Dates: start: 20030929
  2. LAMICTAL [Concomitant]
  3. CARBATROL [Concomitant]

REACTIONS (6)
  - BODY TEMPERATURE INCREASED [None]
  - INJECTION SITE ABSCESS [None]
  - INJECTION SITE INFECTION [None]
  - LEUKOPENIA [None]
  - PYREXIA [None]
  - WHITE BLOOD CELL COUNT DECREASED [None]
